FAERS Safety Report 10405770 (Version 1)
Quarter: 2014Q3

REPORT INFORMATION
  Report Type: Not Available
  Country: IN (occurrence: IN)
  Receive Date: 20140825
  Receipt Date: 20140825
  Transmission Date: 20150326
  Serious: No
  Sender: FDA-Public Use
  Company Number: IN-LUPIN PHARMACEUTICALS INC.-2014-01323

PATIENT
  Age: 25 Year
  Sex: Female

DRUGS (3)
  1. L-CIN [Suspect]
     Active Substance: LEVOFLOXACIN
     Indication: EYE PRURITUS
     Route: 048
     Dates: start: 20140708
  2. ZINETAC [Concomitant]
     Indication: HYPERCHLORHYDRIA
     Route: 048
     Dates: start: 20140708
  3. LECOPE [Concomitant]
     Indication: EYE PRURITUS
     Route: 048
     Dates: start: 20140708

REACTIONS (4)
  - Polymenorrhoea [Not Recovered/Not Resolved]
  - Off label use [Unknown]
  - Pain in extremity [Not Recovered/Not Resolved]
  - Abdominal pain [Not Recovered/Not Resolved]

NARRATIVE: CASE EVENT DATE: 20140708
